FAERS Safety Report 5332486-2 (Version None)
Quarter: 2007Q2

REPORT INFORMATION
  Report Type: 
  Country: None (occurrence: None)
  Receive Date: 20070521
  Receipt Date: 20070509
  Transmission Date: 20071010
  Serious: Yes (Hospitalization)
  Sender: FDA-Public Use
  Company Number: TCI2007A01522

PATIENT
  Age: 51 Year
  Sex: Male

DRUGS (4)
  1. ACTOS [Suspect]
     Indication: DIABETES MELLITUS NON-INSULIN-DEPENDENT
     Dosage: 12.5 MG (12.5 MG,1 IN 1 D)
     Route: 048
     Dates: start: 20060920, end: 20070305
  2. GLUFAST (MITIGLINIDE CALCIUM HYDRATE) [Concomitant]
  3. METFORMIN HYDROCHLORIDE [Concomitant]
  4. GLUCOBAY [Concomitant]

REACTIONS (4)
  - CARDIOMEGALY [None]
  - OEDEMA [None]
  - PERICARDIAL EFFUSION [None]
  - WEIGHT INCREASED [None]
